FAERS Safety Report 6147381-9 (Version None)
Quarter: 2009Q2

REPORT INFORMATION
  Report Type: 
  Country: None (occurrence: None)
  Receive Date: 20090408
  Receipt Date: 20090224
  Transmission Date: 20091009
  Serious: Yes (Hospitalization)
  Sender: FDA-Public Use
  Company Number: FR-PFIZER INC-2009181971

PATIENT

DRUGS (5)
  1. HYDROXYZINE HCL [Suspect]
     Indication: ANXIETY
     Dosage: UNK
     Route: 048
     Dates: start: 20090201, end: 20090201
  2. PHENOXYMETHYLPENICILLIN [Suspect]
     Dosage: UNK
     Route: 048
     Dates: start: 20090201, end: 20090201
  3. ADRENALINE [Concomitant]
  4. OXACILLIN [Concomitant]
     Indication: TRACHEITIS
     Dosage: UNK
     Route: 048
     Dates: start: 20090201, end: 20090201
  5. RIFAMPICIN [Concomitant]
     Indication: TRACHEITIS
     Dosage: UNK
     Dates: end: 20090201

REACTIONS (2)
  - TOXIC SKIN ERUPTION [None]
  - TRACHEITIS [None]
